FAERS Safety Report 16803470 (Version 1)
Quarter: 2019Q3

REPORT INFORMATION
  Report Type: Spontaneous
  Country: US (occurrence: US)
  Receive Date: 20190913
  Receipt Date: 20190913
  Transmission Date: 20191005
  Serious: Yes (Other)
  Sender: FDA-Public Use
  Company Number: US-MALLINCKRODT-T201906278

PATIENT
  Sex: Female
  Weight: 59 kg

DRUGS (1)
  1. FENTANYL TRANSDERMAL SYSTEM [Suspect]
     Active Substance: FENTANYL
     Indication: PAIN
     Dosage: ONE PATCH EVERY THREE DAYS
     Route: 062

REACTIONS (2)
  - Renal cancer [Not Recovered/Not Resolved]
  - Product adhesion issue [Not Recovered/Not Resolved]
